FAERS Safety Report 19423906 (Version 1)
Quarter: 2021Q2

REPORT INFORMATION
  Report Type: Spontaneous
  Country: FR (occurrence: FR)
  Receive Date: 20210616
  Receipt Date: 20210616
  Transmission Date: 20210717
  Serious: Yes (Other)
  Sender: FDA-Public Use
  Company Number: FR-INDIVIOR EUROPE LIMITED-INDV-130005-2021

PATIENT
  Age: 35 Year
  Sex: Female

DRUGS (2)
  1. BUPRENORPHINE. [Suspect]
     Active Substance: BUPRENORPHINE
     Indication: DRUG DEPENDENCE
     Dosage: 8 MILLIGRAM, QD
     Route: 065
  2. NICOTINE. [Concomitant]
     Active Substance: NICOTINE
     Indication: PRODUCT USED FOR UNKNOWN INDICATION
     Dosage: 10 CIGARETTES/DAY, 12 PACK?YEARS
     Route: 055

REACTIONS (5)
  - Stillbirth [Recovered/Resolved]
  - Drug abuse [Unknown]
  - Intentional product use issue [Unknown]
  - Maternal exposure during pregnancy [Recovered/Resolved]
  - Intermenstrual bleeding [Unknown]
